FAERS Safety Report 22289904 (Version 1)
Quarter: 2023Q2

REPORT INFORMATION
  Report Type: Spontaneous
  Country: US (occurrence: None)
  Receive Date: 20230505
  Receipt Date: 20230505
  Transmission Date: 20230722
  Serious: Yes (Hospitalization, Other)
  Sender: FDA-Public Use
  Company Number: 2023A099419

PATIENT
  Age: 499 Month
  Sex: Male

DRUGS (1)
  1. SAPHNELO [Suspect]
     Active Substance: ANIFROLUMAB-FNIA
     Indication: Systemic lupus erythematosus
     Route: 058
     Dates: start: 202112

REACTIONS (4)
  - Supraventricular tachycardia [Unknown]
  - Noninfective encephalitis [Unknown]
  - Capillary fragility [Unknown]
  - Headache [Unknown]

NARRATIVE: CASE EVENT DATE: 20211201
